FAERS Safety Report 21685150 (Version 1)
Quarter: 2022Q4

REPORT INFORMATION
  Report Type: Report from Study
  Country: US (occurrence: US)
  Receive Date: 20221206
  Receipt Date: 20221206
  Transmission Date: 20230113
  Serious: No
  Sender: FDA-Public Use
  Company Number: US-ABBVIE-4213311

PATIENT
  Age: 46 Year
  Sex: Female

DRUGS (4)
  1. HUMIRA [Suspect]
     Active Substance: ADALIMUMAB
     Indication: Crohn^s disease
     Dosage: CITRATE FREE?STRENGTH: 40 MILLIGRAM
     Route: 058
     Dates: start: 2022
  2. HUMIRA [Suspect]
     Active Substance: ADALIMUMAB
     Indication: Crohn^s disease
     Dosage: CITRATE FREE?STRENGTH: 40 MILLIGRAM
     Route: 058
     Dates: start: 20220719
  3. HUMIRA [Suspect]
     Active Substance: ADALIMUMAB
     Indication: Colitis ulcerative
  4. DIETHYLPROPION [Concomitant]
     Active Substance: DIETHYLPROPION
     Indication: Product used for unknown indication
     Route: 048

REACTIONS (17)
  - Dry skin [Unknown]
  - Urine odour abnormal [Recovering/Resolving]
  - Rash pruritic [Unknown]
  - Rash [Unknown]
  - Skin discolouration [Unknown]
  - Grip strength decreased [Unknown]
  - Back pain [Recovering/Resolving]
  - Paraesthesia [Recovering/Resolving]
  - Haematochezia [Recovered/Resolved]
  - Acne [Unknown]
  - Hypoaesthesia [Unknown]
  - Skin irritation [Unknown]
  - Erythema [Unknown]
  - Pain of skin [Unknown]
  - Sensitive skin [Unknown]
  - Therapeutic product effect delayed [Unknown]
  - Skin ulcer [Recovering/Resolving]

NARRATIVE: CASE EVENT DATE: 20221015
